FAERS Safety Report 16690131 (Version 1)
Quarter: 2019Q3

REPORT INFORMATION
  Report Type: Report from Study
  Country: US (occurrence: US)
  Receive Date: 20190809
  Receipt Date: 20190809
  Transmission Date: 20191004
  Serious: Yes (Hospitalization)
  Sender: FDA-Public Use
  Company Number: US-BIOGEN-2019BI00771348

PATIENT
  Sex: Male

DRUGS (1)
  1. TECFIDERA [Suspect]
     Active Substance: DIMETHYL FUMARATE
     Indication: MULTIPLE SCLEROSIS
     Dosage: MAINTENANCE DOSE
     Route: 048
     Dates: start: 20190311

REACTIONS (7)
  - Gait disturbance [Unknown]
  - Unresponsive to stimuli [Unknown]
  - Back pain [Unknown]
  - Pain in extremity [Unknown]
  - Burning sensation [Unknown]
  - Malaise [Unknown]
  - Syncope [Unknown]

NARRATIVE: CASE EVENT DATE: 2019
